FAERS Safety Report 8444024-6 (Version None)
Quarter: 2012Q2

REPORT INFORMATION
  Report Type: 
  Country: None (occurrence: None)
  Receive Date: 20120323
  Receipt Date: 20111114
  Transmission Date: 20120825
  Serious: Yes (Disabling, Other)
  Sender: FDA-Public Use
  Company Number: 163-21880-11070721

PATIENT
  Age: 57 Year
  Sex: Male
  Weight: 66.2252 kg

DRUGS (11)
  1. COLACE (DOCUSATE SODIUM) [Concomitant]
  2. ZOFRAN [Concomitant]
  3. ACYCLOVIR [Concomitant]
  4. REVLIMID [Suspect]
     Indication: MULTIPLE MYELOMA
     Dosage: 5 MG, 1 IN 1 D, PO
     Route: 048
     Dates: start: 20110121, end: 20110322
  5. VELCADE [Concomitant]
  6. DEXAMETHASONE [Concomitant]
  7. ACETAMINOPHEN [Concomitant]
  8. PHENERGAN HCL [Concomitant]
  9. CELEXA [Concomitant]
  10. DILAUDID [Concomitant]
  11. MIRALAX [Concomitant]

REACTIONS (2)
  - PANCYTOPENIA [None]
  - MULTIPLE MYELOMA [None]
